FAERS Safety Report 9094108 (Version 1)
Quarter: 2013Q1

REPORT INFORMATION
  Report Type: Spontaneous
  Country: US (occurrence: None)
  Receive Date: 20130122
  Receipt Date: 20130122
  Transmission Date: 20140127
  Serious: Yes (Hospitalization, Other)
  Sender: FDA-Public Use
  Company Number: JPI-P-029018

PATIENT
  Age: 36 Year
  Sex: Female
  Weight: 74.84 kg

DRUGS (8)
  1. XYREM (500 MILLIGRAM/MILLILITERS, SOLUTION)(SODIUM OXYBATE) [Suspect]
     Dosage: 2.25 GM,2 IN 1 D)
     Route: 048
     Dates: start: 20121204
  2. XYREM (500 MILLIGRAM/MILLILITERS, SOLUTION)(SODIUM OXYBATE) [Suspect]
     Dosage: 2.25 GM,2 IN 1 D)
     Route: 048
     Dates: start: 20121204
  3. BIRTH CONTROL [Concomitant]
  4. ESCITALOPRAM OXALATE [Concomitant]
  5. VITAMINS [Concomitant]
  6. CALCIUM [Concomitant]
  7. GLUCOSAMINE [Concomitant]
  8. VITAMIN B12 [Concomitant]

REACTIONS (3)
  - Hypertensive emergency [None]
  - Nervousness [None]
  - Blood sodium decreased [None]
